FAERS Safety Report 5165853-0 (Version None)
Quarter: 2006Q4

REPORT INFORMATION
  Report Type: 
  Country: None (occurrence: None)
  Receive Date: 20061128
  Receipt Date: 20061024
  Transmission Date: 20070319
  Serious: Yes (Disabling)
  Sender: FDA-Public Use
  Company Number: GXKR2006ES06503

PATIENT
  Age: 69 Year
  Sex: Male

DRUGS (5)
  1. PREDNISOLONE ACETATE [Suspect]
     Indication: POSTOPERATIVE CARE
     Dosage: TOPICAL
     Route: 061
  2. ACULAR [Suspect]
     Indication: POSTOPERATIVE CARE
     Dosage: Q6H, TOPICAL
     Route: 061
  3. NEOMYCIN [Concomitant]
  4. POLY-PRED (NEOMYCIN SULFATE, POLYMYXIN B SULFATE, PREDNISOLONE ACETATE [Concomitant]
  5. CYCLOPENTOLATE (CYCLOPENTOLATE) [Concomitant]

REACTIONS (4)
  - CORNEAL DISORDER [None]
  - CORNEAL SCAR [None]
  - DRUG INTERACTION [None]
  - ULCERATIVE KERATITIS [None]
